FAERS Safety Report 18100964 (Version 4)
Quarter: 2021Q3

REPORT INFORMATION
  Report Type: Other
  Country: CA (occurrence: CA)
  Receive Date: 20200801
  Receipt Date: 20210709
  Transmission Date: 20211014
  Serious: Yes (Other)
  Sender: FDA-Public Use
  Company Number: CA-APOTEX-2020AP014585

PATIENT
  Age: 58 Year
  Sex: Male

DRUGS (16)
  1. BICALUTAMIDE. [Interacting]
     Active Substance: BICALUTAMIDE
     Indication: PROSTATE CANCER
  2. LEUPRORELIN [Interacting]
     Active Substance: LEUPROLIDE ACETATE
     Indication: METASTASES TO BONE
  3. EMTRICITABINE + TENOFOVIR DISOPROXIL FUMARATE [Concomitant]
     Active Substance: EMTRICITABINE\TENOFOVIR DISOPROXIL FUMARATE
     Indication: HIV INFECTION
     Dosage: UNK UNK, QD
     Route: 065
  4. ENZALUTAMIDE [Interacting]
     Active Substance: ENZALUTAMIDE
     Indication: PROSTATE CANCER
     Dosage: UNK
     Route: 065
  5. RITONAVIR. [Interacting]
     Active Substance: RITONAVIR
     Dosage: 200 MILLIGRAM, Q.12H
     Route: 065
  6. LEUPROLIDE ACETATE. [Interacting]
     Active Substance: LEUPROLIDE ACETATE
     Indication: METASTASES TO BONE
  7. DARUNAVIR [Interacting]
     Active Substance: DARUNAVIR
     Indication: HIV INFECTION
     Dosage: 600 MILLIGRAM, Q.12H
     Route: 065
  8. EMTRICITABINE;TENOFOVIR ALAFENAMIDE FUMARATE [Concomitant]
     Active Substance: EMTRICITABINE\TENOFOVIR ALAFENAMIDE FUMARATE
     Indication: HIV INFECTION
     Dosage: UNK UNK, QD
     Route: 065
  9. LEUPROLIDE ACETATE. [Interacting]
     Active Substance: LEUPROLIDE ACETATE
     Indication: PROSTATE CANCER
     Dosage: UNK
     Route: 065
  10. DOLUTEGRAVIR [Interacting]
     Active Substance: DOLUTEGRAVIR
     Indication: HIV INFECTION
     Dosage: 50 MILLIGRAM, Q.12H
     Route: 065
  11. ETRAVIRINE [Interacting]
     Active Substance: ETRAVIRINE
     Dosage: 200 MILLIGRAM
     Route: 065
  12. LEUPRORELIN [Interacting]
     Active Substance: LEUPROLIDE ACETATE
     Indication: PROSTATE CANCER
     Dosage: UNK
     Route: 065
  13. RITONAVIR. [Interacting]
     Active Substance: RITONAVIR
     Indication: HIV INFECTION
     Dosage: 100 MILLIGRAM
     Route: 065
  14. RALTEGRAVIR. [Concomitant]
     Active Substance: RALTEGRAVIR
     Indication: HIV INFECTION
     Dosage: 400 MILLIGRAM
     Route: 065
  15. BICALUTAMIDE. [Suspect]
     Active Substance: BICALUTAMIDE
     Indication: METASTASES TO BONE
     Dosage: UNK
     Route: 048
  16. ETRAVIRINE [Interacting]
     Active Substance: ETRAVIRINE
     Indication: HIV INFECTION
     Dosage: 200 MILLIGRAM, Q.12H
     Route: 065

REACTIONS (5)
  - Prostate cancer [Unknown]
  - Product use in unapproved indication [Unknown]
  - Drug interaction [Unknown]
  - Drug ineffective [Unknown]
  - Drug level decreased [Unknown]
